FAERS Safety Report 16377006 (Version 1)
Quarter: 2019Q3

REPORT INFORMATION
  Report Type: Spontaneous
  Country: US (occurrence: US)
  Receive Date: 20190530
  Receipt Date: 20190530
  Transmission Date: 20191004
  Serious: Yes (Other)
  Sender: FDA-Public Use
  Company Number: None

PATIENT
  Age: 34 Year
  Sex: Female
  Weight: 67.5 kg

DRUGS (2)
  1. XANAX .25MG [Concomitant]
  2. CYMBALTA [Suspect]
     Active Substance: DULOXETINE HYDROCHLORIDE
     Indication: NEURALGIA

REACTIONS (8)
  - Dysstasia [None]
  - Fatigue [None]
  - Withdrawal syndrome [None]
  - Dizziness [None]
  - Mood altered [None]
  - Suicidal ideation [None]
  - Job dissatisfaction [None]
  - Headache [None]

NARRATIVE: CASE EVENT DATE: 20190524
